FAERS Safety Report 6228319-2 (Version None)
Quarter: 2009Q2

REPORT INFORMATION
  Report Type: 
  Country: None (occurrence: None)
  Receive Date: 20090612
  Receipt Date: 20090603
  Transmission Date: 20091009
  Serious: Yes (Other)
  Sender: FDA-Public Use
  Company Number: BR-AVENTIS-200912842GDDC

PATIENT
  Age: 69 Year
  Sex: Female
  Weight: 72 kg

DRUGS (9)
  1. LANTUS [Suspect]
     Route: 058
     Dates: start: 20080101
  2. LANTUS [Suspect]
     Route: 058
  3. LANTUS [Suspect]
     Route: 058
     Dates: end: 20090425
  4. OPTIPEN (INSULIN PUMP) [Suspect]
     Dates: start: 20081101
  5. DRUG USED IN DIABETES [Concomitant]
     Dosage: DOSE: 2 TABLETS FASTING
     Route: 048
  6. METFORMIN HYDROCHLORIDE [Concomitant]
     Dosage: DOSE QUANTITY: 1
     Route: 048
  7. VENLAFAXINE HYDROCHLORIDE [Concomitant]
     Dosage: DOSE QUANTITY: 1
     Route: 048
     Dates: start: 20080501
  8. SOTALOL HYDROCHLORIDE [Concomitant]
     Indication: WOLFF-PARKINSON-WHITE SYNDROME
     Dosage: DOSE: 1/2
     Route: 048
  9. DIAMICRON [Concomitant]
     Dosage: DOSE: 4 TABLETS IN FASTING
     Route: 048

REACTIONS (6)
  - BLOOD GLUCOSE INCREASED [None]
  - CONDITION AGGRAVATED [None]
  - SWELLING [None]
  - VAGINAL HAEMORRHAGE [None]
  - VULVOVAGINAL PRURITUS [None]
  - WEIGHT INCREASED [None]
